FAERS Safety Report 5068751-6 (Version None)
Quarter: 2006Q3

REPORT INFORMATION
  Report Type: 
  Country: None (occurrence: None)
  Receive Date: 20060802
  Receipt Date: 20060316
  Transmission Date: 20061208
  Serious: No
  Sender: FDA-Public Use
  Company Number: US-BRISTOL-MYERS SQUIBB COMPANY-13317300

PATIENT
  Age: 79 Year
  Sex: Female

DRUGS (1)
  1. COUMADIN [Suspect]
     Dosage: 2.5 MG DAILY FOR 6 DAYS, 5 MG DAILY FOR 1 DAY
     Route: 048
     Dates: start: 20051001

REACTIONS (1)
  - ALOPECIA [None]
